FAERS Safety Report 21817537 (Version 1)
Quarter: 2023Q1

REPORT INFORMATION
  Report Type: Spontaneous
  Country: US (occurrence: US)
  Receive Date: 20230104
  Receipt Date: 20230104
  Transmission Date: 20230418
  Serious: No
  Sender: FDA-Public Use
  Company Number: US-PFIZER INC-202300002580

PATIENT
  Age: 79 Year
  Sex: Female

DRUGS (1)
  1. TROMETHAMINE [Suspect]
     Active Substance: TROMETHAMINE
     Dosage: UNK
     Route: 042

REACTIONS (1)
  - Illness [Unknown]
